FAERS Safety Report 23283836 (Version 2)
Quarter: 2023Q4

REPORT INFORMATION
  Report Type: Spontaneous
  Country: CN (occurrence: CN)
  Receive Date: 20231211
  Receipt Date: 20231212
  Transmission Date: 20240109
  Serious: Yes (Hospitalization)
  Sender: FDA-Public Use
  Company Number: CN-BAYER-2023A175339

PATIENT
  Age: 33 Year
  Sex: Female
  Weight: 56 kg

DRUGS (1)
  1. YAZ [Suspect]
     Active Substance: DROSPIRENONE\ETHINYL ESTRADIOL
     Indication: Post abortion complication
     Dosage: 1 DF, QD
     Route: 048
     Dates: start: 20231117, end: 20231127

REACTIONS (7)
  - Hepatic enzyme increased [Unknown]
  - Cholecystitis acute [Recovering/Resolving]
  - Abdominal pain [Recovering/Resolving]
  - Cholelithiasis [None]
  - Blood bilirubin increased [None]
  - Bile acids increased [None]
  - Blood alkaline phosphatase increased [None]

NARRATIVE: CASE EVENT DATE: 20231128
